FAERS Safety Report 11875073 (Version 1)
Quarter: 2015Q4

REPORT INFORMATION
  Report Type: Spontaneous
  Country: US (occurrence: None)
  Receive Date: 20151228
  Receipt Date: 20151228
  Transmission Date: 20160305
  Serious: Yes (Hospitalization, Disabling)
  Sender: FDA-Public Use
  Company Number: None

PATIENT
  Age: 18 Year
  Sex: Female
  Weight: 61.24 kg

DRUGS (4)
  1. PROTONIX [Concomitant]
     Active Substance: PANTOPRAZOLE SODIUM
  2. CEFIDNIR 300MG [Suspect]
     Active Substance: CEFDINIR
     Indication: NASAL DISORDER
     Dosage: 1  TAKEN UNDER THE TONGUE
  3. JUNEL [Concomitant]
     Active Substance: ETHINYL ESTRADIOL\NORETHINDRONE ACETATE
  4. CEFIDNIR 300MG [Suspect]
     Active Substance: CEFDINIR
     Indication: MUCOSAL INFLAMMATION
     Dosage: 1  TAKEN UNDER THE TONGUE

REACTIONS (2)
  - Pain [None]
  - Clostridium difficile infection [None]

NARRATIVE: CASE EVENT DATE: 20151204
